FAERS Safety Report 6716258-X (Version None)
Quarter: 2010Q2

REPORT INFORMATION
  Report Type: 
  Country: None (occurrence: None)
  Receive Date: 20100507
  Receipt Date: 20100505
  Transmission Date: 20101027
  Serious: Yes (Other)
  Sender: FDA-Public Use
  Company Number: US-BRISTOL-MYERS SQUIBB COMPANY-15092802

PATIENT
  Age: 67 Year
  Sex: Female
  Weight: 42 kg

DRUGS (2)
  1. ERBITUX [Suspect]
     Indication: NON-SMALL CELL LUNG CANCER
     Dates: start: 20100503
  2. RADIATION THERAPY [Suspect]
     Indication: NON-SMALL CELL LUNG CANCER
     Dosage: LAST DOSE: 03MAY10; 1DF= 2GY; FRACTIONS: 30
     Dates: start: 20100401

REACTIONS (1)
  - WOLFF-PARKINSON-WHITE SYNDROME [None]
